FAERS Safety Report 19067650 (Version 1)
Quarter: 2021Q1

REPORT INFORMATION
  Report Type: Spontaneous
  Country: GB (occurrence: GB)
  Receive Date: 20210329
  Receipt Date: 20210329
  Transmission Date: 20210420
  Serious: Yes (Hospitalization)
  Sender: FDA-Public Use
  Company Number: GB-TEVA-2021-GB-1894290

PATIENT
  Age: 27 Year
  Sex: Female

DRUGS (14)
  1. ERYTHROMYCIN. [Concomitant]
     Active Substance: ERYTHROMYCIN
     Dosage: 1000 MILLIGRAM DAILY;
     Dates: start: 20201029
  2. DOXYCYCLINE. [Concomitant]
     Active Substance: DOXYCYCLINE
  3. MIRTAZAPINE. [Concomitant]
     Active Substance: MIRTAZAPINE
     Dosage: 15 MILLIGRAM DAILY; AT NIGHT
  4. RAMIPRIL. [Concomitant]
     Active Substance: RAMIPRIL
     Dosage: 2.5 MILLIGRAM DAILY;
  5. TRANEXAMIC ACID. [Concomitant]
     Active Substance: TRANEXAMIC ACID
     Dosage: 3000 MILLIGRAM DAILY;
     Dates: start: 20201117
  6. ATORVASTATIN [Concomitant]
     Active Substance: ATORVASTATIN
     Dosage: 40 MILLIGRAM DAILY;
  7. DICLOFENAC [Concomitant]
     Active Substance: DICLOFENAC
     Dosage: THREE TIMES A DAY AS REQUIRED ? NOT REQUIRED CURRENTLY
  8. PREGABALIN. [Concomitant]
     Active Substance: PREGABALIN
     Dosage: 900 MILLIGRAM DAILY;
  9. TOCILIZUMAB. [Concomitant]
     Active Substance: TOCILIZUMAB
     Dosage: (HOMECARE) PEN 162MG INJECTION ? PT HAS NOT HAD FOR AROUND 5/52 AS BEEN UNWELL
     Dates: start: 20200925
  10. MORPHINE [Concomitant]
     Active Substance: MORPHINE
     Dosage: 5MG ? 10MG (2.5ML ? 5ML) TO BE TAKEN 4 HOURLY PRN
  11. CLARITHROMYCIN. [Suspect]
     Active Substance: CLARITHROMYCIN
     Route: 065
  12. FOLIC ACID. [Concomitant]
     Active Substance: FOLIC ACID
     Dosage: 5 MILLIGRAM DAILY;
  13. LANSOPRAZOLE. [Concomitant]
     Active Substance: LANSOPRAZOLE
     Dosage: 30 MILLIGRAM DAILY; EACH MORNING
  14. PROPRANOLOL [Concomitant]
     Active Substance: PROPRANOLOL HYDROCHLORIDE
     Dosage: 80 MILLIGRAM DAILY;

REACTIONS (1)
  - Liver function test increased [Recovered/Resolved with Sequelae]
